FAERS Safety Report 11989818 (Version 1)
Quarter: 2016Q1

REPORT INFORMATION
  Report Type: Spontaneous
  Country: US (occurrence: US)
  Receive Date: 20160202
  Receipt Date: 20160202
  Transmission Date: 20160526
  Serious: No
  Sender: FDA-Public Use
  Company Number: US-ROCHE-1481793

PATIENT
  Sex: Female

DRUGS (6)
  1. CEPHALEXIN. [Concomitant]
     Active Substance: CEPHALEXIN
  2. TENEX [Concomitant]
     Active Substance: GUANFACINE HYDROCHLORIDE
  3. NUTROPIN AQ [Suspect]
     Active Substance: SOMATROPIN
     Route: 058
     Dates: end: 20141210
  4. NUTROPIN AQ [Suspect]
     Active Substance: SOMATROPIN
     Indication: GROWTH RETARDATION
     Dosage: 6X WEEK
     Route: 058
     Dates: start: 201310, end: 201410
  5. CONCERTA [Concomitant]
     Active Substance: METHYLPHENIDATE HYDROCHLORIDE
  6. NUTROPIN AQ [Suspect]
     Active Substance: SOMATROPIN
     Route: 058
     Dates: end: 20141210

REACTIONS (1)
  - Drug ineffective [Unknown]
